FAERS Safety Report 8383427-5 (Version None)
Quarter: 2012Q2

REPORT INFORMATION
  Report Type: 
  Country: None (occurrence: None)
  Receive Date: 20120524
  Receipt Date: 20120516
  Transmission Date: 20120825
  Serious: Yes (Hospitalization)
  Sender: FDA-Public Use
  Company Number: SE-SANOFI-AVENTIS-2012SA034755

PATIENT
  Age: 58 Year
  Sex: Male

DRUGS (4)
  1. PLAQUENIL [Suspect]
     Indication: RHEUMATOID ARTHRITIS
     Route: 048
     Dates: start: 20120113, end: 20120319
  2. PULMICORT [Concomitant]
  3. PREDNISOLONE [Suspect]
     Route: 065
     Dates: start: 20120113
  4. OMEPRAZOLE [Concomitant]

REACTIONS (2)
  - MANIA [None]
  - ANXIETY [None]
